FAERS Safety Report 16858483 (Version 1)
Quarter: 2019Q3

REPORT INFORMATION
  Report Type: Other
  Country: CA (occurrence: CA)
  Receive Date: 20190926
  Receipt Date: 20190926
  Transmission Date: 20191005
  Serious: Yes (Disabling, Other)
  Sender: FDA-Public Use
  Company Number: CA-TOLMAR, INC.-19CA000294

PATIENT
  Sex: Male

DRUGS (1)
  1. ELIGARD [Suspect]
     Active Substance: LEUPROLIDE ACETATE
     Indication: PROSTATE CANCER
     Dosage: 45 MG, EVERY 6 MONTHS
     Route: 058
     Dates: start: 20171117

REACTIONS (4)
  - Abnormal sensation in eye [Unknown]
  - Retinal detachment [Recovered/Resolved with Sequelae]
  - Blindness unilateral [Unknown]
  - Ocular hyperaemia [Unknown]
